FAERS Safety Report 10456339 (Version 3)
Quarter: 2014Q4

REPORT INFORMATION
  Report Type: Spontaneous
  Country: US (occurrence: None)
  Receive Date: 20140912
  Receipt Date: 20141229
  Transmission Date: 20150528
  Serious: Yes (Hospitalization)
  Sender: FDA-Public Use
  Company Number: 2014-US-011129

PATIENT
  Age: 71 Year
  Sex: Male

DRUGS (15)
  1. PRIALT [Suspect]
     Active Substance: ZICONOTIDE ACETATE
     Indication: PAIN
     Dosage: UG, QD, INTRATHECAL
     Route: 037
     Dates: start: 201402, end: 201402
  2. PRIALT [Suspect]
     Active Substance: ZICONOTIDE ACETATE
     Indication: POST LAMINECTOMY SYNDROME
     Dosage: UG, QD, INTRATHECAL
     Route: 037
     Dates: start: 201402, end: 201402
  3. ASPIRIN (ACETYLSALICYLIC ACID) [Concomitant]
     Active Substance: ASPIRIN
  4. MEDROL [Concomitant]
     Active Substance: METHYLPREDNISOLONE
  5. IMODIUM A-D (LOPERAMIDE HYDROCHLORIDE) [Concomitant]
  6. GABAPENTIN (GABAPENTIN) [Concomitant]
     Active Substance: GABAPENTIN
  7. LEVOTHYROXINE SODIUM (LEVOTHYROXINE SODIUM) [Concomitant]
  8. CYANOCOBALAMIN (CYANOCOABALAMIN) [Concomitant]
  9. PLAVIX (CLOPIDOGREL BISULFATE) [Concomitant]
  10. BUPROPION HCL (BUPROPION HYDROCHLORIDE) [Concomitant]
     Active Substance: BUPROPION HYDROCHLORIDE
  11. HUMALOG [Concomitant]
     Active Substance: INSULIN LISPRO
  12. AMLODIPINE BESYLATE (AMLODIPINE BESILATE) [Concomitant]
     Active Substance: AMLODIPINE BESYLATE
  13. ZOFRAN (ONDANSETRON HYDROCHLORIDE) [Concomitant]
  14. LOSARTAN POTASSIUM (LOSARTAN POTASSIUM) [Concomitant]
     Active Substance: LOSARTAN POTASSIUM
  15. CALCIUM W/ VITAMIN D (CALCIUM CITRATE , ERGOCALCIFEROL) [Concomitant]

REACTIONS (6)
  - Blood creatine phosphokinase increased [None]
  - Vomiting [None]
  - Coronary artery disease [None]
  - Dehydration [None]
  - Myocardial infarction [None]
  - Nausea [None]

NARRATIVE: CASE EVENT DATE: 20140303
